FAERS Safety Report 25769120 (Version 3)
Quarter: 2025Q4

REPORT INFORMATION
  Report Type: Spontaneous
  Country: US (occurrence: US)
  Receive Date: 20250905
  Receipt Date: 20251222
  Transmission Date: 20260118
  Serious: Yes (Death, Other)
  Sender: AMGEN
  Company Number: US-AMGEN-USASP2025174833

PATIENT

DRUGS (6)
  1. RITUXIMAB [Suspect]
     Active Substance: RITUXIMAB
     Indication: B-cell lymphoma recurrent
     Dosage: UNK, Q2WK (8 CYCTES)
     Route: 065
  2. RITUXIMAB [Suspect]
     Active Substance: RITUXIMAB
     Indication: B-cell lymphoma refractory
     Dosage: 375 MILLIGRAM/SQ. METER ON DAY 1 OF CYCLES 1-8 (14-DAY CYCLES)
     Route: 065
  3. GEMCITABINE [Concomitant]
     Active Substance: GEMCITABINE
     Indication: B-cell lymphoma recurrent
     Dosage: UNK, Q2WK (8 CYCTES)
  4. GEMCITABINE [Concomitant]
     Active Substance: GEMCITABINE
     Indication: B-cell lymphoma refractory
     Dosage: 1000 MILLIGRAM/SQ. METER ON DAY 1 OF CYCLES 1-8 (14-DAY CYCLES)
     Route: 065
  5. OXALIPLATIN [Concomitant]
     Active Substance: OXALIPLATIN
     Indication: B-cell lymphoma recurrent
     Dosage: UNK, Q2WK (8 CYCTES)
  6. OXALIPLATIN [Concomitant]
     Active Substance: OXALIPLATIN
     Indication: B-cell lymphoma refractory
     Dosage: 100 MILLIGRAM/SQ. METER ON DAY 1 OF CYCLES 1-8 (14-DAY CYCLES)
     Route: 065

REACTIONS (22)
  - Death [Fatal]
  - Adverse event [Fatal]
  - Pneumonia [Fatal]
  - Septic shock [Fatal]
  - Sepsis [Fatal]
  - COVID-19 pneumonia [Fatal]
  - Neuropathy peripheral [Unknown]
  - Thrombocytopenia [Unknown]
  - Neutropenia [Unknown]
  - Diffuse large B-cell lymphoma recurrent [Unknown]
  - Embolism [Unknown]
  - Delirium [Unknown]
  - Febrile neutropenia [Unknown]
  - Therapy partial responder [Unknown]
  - Anaemia [Unknown]
  - COVID-19 [Unknown]
  - Fatigue [Unknown]
  - Nausea [Unknown]
  - Diarrhoea [Unknown]
  - Infusion related reaction [Unknown]
  - Respiratory syncytial virus infection [Unknown]
  - Infection [Unknown]
